FAERS Safety Report 5355332-X (Version None)
Quarter: 2007Q2

REPORT INFORMATION
  Report Type: 
  Country: None (occurrence: None)
  Receive Date: 20070613
  Receipt Date: 20070531
  Transmission Date: 20071010
  Serious: Yes (Death, Life-Threatening)
  Sender: FDA-Public Use
  Company Number: FR-BAYER-200710349BFR

PATIENT
  Age: 72 Year
  Sex: Male
  Weight: 100 kg

DRUGS (5)
  1. CIFLOX [Suspect]
     Indication: UNEVALUABLE EVENT
     Route: 048
     Dates: start: 20070216, end: 20070223
  2. ROCEPHIN [Suspect]
     Indication: UNEVALUABLE EVENT
     Route: 042
     Dates: start: 20070216, end: 20070220
  3. TRIFLUCAN [Suspect]
     Indication: CANDIDIASIS
     Route: 048
     Dates: start: 20070208, end: 20070227
  4. LOVENOX [Suspect]
     Indication: UNEVALUABLE EVENT
     Route: 058
     Dates: start: 20070214, end: 20070222
  5. ROVALCYTE [Suspect]
     Indication: CYTOMEGALOVIRUS COLITIS
     Route: 048
     Dates: start: 20070215, end: 20070227

REACTIONS (1)
  - THROMBOCYTOPENIA [None]
